FAERS Safety Report 9239152 (Version 2)
Quarter: 2013Q2

REPORT INFORMATION
  Report Type: Spontaneous
  Country: GB (occurrence: GB)
  Receive Date: 20130418
  Receipt Date: 20130503
  Transmission Date: 20140414
  Serious: Yes (Hospitalization, Other)
  Sender: FDA-Public Use
  Company Number: GB-009507513-1304GBR006558

PATIENT
  Age: 82 Year
  Sex: Female

DRUGS (4)
  1. EZETROL [Suspect]
     Dosage: 10 MG, QD
     Route: 048
  2. RIVAROXABAN [Concomitant]
     Dosage: 20 MG, UNK
  3. BISOPROLOL [Concomitant]
     Dosage: 7.5 MG, UNK
  4. LOSARTAN POTASSIUM [Concomitant]
     Dosage: 100 MG, QD

REACTIONS (3)
  - Cerebrovascular accident [Unknown]
  - Confusional state [Unknown]
  - Refusal of treatment by patient [Unknown]
